FAERS Safety Report 8024928-9 (Version None)
Quarter: 2012Q1

REPORT INFORMATION
  Report Type: 
  Country: None (occurrence: None)
  Receive Date: 20120103
  Receipt Date: 20111220
  Transmission Date: 20120608
  Serious: Yes (Other)
  Sender: FDA-Public Use
  Company Number: ACO_28561_2011

PATIENT
  Age: 33 Year
  Sex: Female

DRUGS (5)
  1. BISOPROLOL FUMARATE [Concomitant]
  2. SUMATRIPTAN (SUMATRIPTAN) [Concomitant]
  3. REBIF [Concomitant]
  4. DELIX /00885601/ (RAMIPRIL) [Concomitant]
  5. FAMPYRA (DALFAMPRIDINE) TABLET, 10MG [Suspect]
     Indication: GAIT DISTURBANCE
     Dosage: 10 MG, BID, ORAL
     Route: 048
     Dates: start: 20111208, end: 20111213

REACTIONS (2)
  - ARRHYTHMIA [None]
  - BLOOD PRESSURE INCREASED [None]
